FAERS Safety Report 17440093 (Version 1)
Quarter: 2020Q1

REPORT INFORMATION
  Report Type: Spontaneous
  Country: CN (occurrence: CN)
  Receive Date: 20200220
  Receipt Date: 20200220
  Transmission Date: 20200409
  Serious: Yes (Other)
  Sender: FDA-Public Use
  Company Number: CN-BAYER-2020-025278

PATIENT
  Age: 58 Year
  Sex: Male

DRUGS (1)
  1. AVELOX [Suspect]
     Active Substance: MOXIFLOXACIN HYDROCHLORIDE
     Indication: SKIN INFECTION
     Dosage: 0.4 G, QD
     Route: 041
     Dates: start: 20200118

REACTIONS (3)
  - Drug hypersensitivity [Recovering/Resolving]
  - Skin infection [None]
  - Rash pruritic [Recovering/Resolving]

NARRATIVE: CASE EVENT DATE: 20200120
